FAERS Safety Report 6891405-8 (Version None)
Quarter: 2010Q3

REPORT INFORMATION
  Report Type: 
  Country: None (occurrence: None)
  Receive Date: 20100731
  Receipt Date: 20070126
  Transmission Date: 20110219
  Serious: Yes (Other)
  Sender: FDA-Public Use
  Company Number: US-PFIZER INC-2007008673

PATIENT
  Age: 70 Year
  Sex: Male
  Weight: 81.6 kg

DRUGS (1)
  1. METHYLPREDNISOLONE ACETATE [Suspect]
     Route: 050

REACTIONS (4)
  - FEELING ABNORMAL [None]
  - HYPERTENSION [None]
  - PAIN IN EXTREMITY [None]
  - TENDON DISORDER [None]
